FAERS Safety Report 9198421 (Version 2)
Quarter: 2013Q3

REPORT INFORMATION
  Report Type: Spontaneous
  Country: US (occurrence: None)
  Receive Date: 20120709
  Receipt Date: 20130724
  Transmission Date: 20140515
  Serious: Yes (Other)
  Sender: FDA-Public Use
  Company Number: PHEH2011US06635

PATIENT
  Age: 71 Year
  Sex: Female

DRUGS (15)
  1. GLEEVEC (IMATINIB) UNKNOWN [Suspect]
     Indication: CHRONIC MYELOID LEUKAEMIA
     Route: 048
     Dates: start: 20110626
  2. VIVETTA [Concomitant]
  3. VITAMIN D (ERGOCALCIFEROL) [Concomitant]
  4. ACCUPRIL (QUINAPRIL HYDROCHLORIDE) [Concomitant]
  5. ASPIRIN (ACETYLSALICYLIC ACID) [Concomitant]
  6. ATENOLOL (ATENOLOL) [Concomitant]
  7. CLARITIN (LORATADINE) [Concomitant]
  8. FERROUS SULPHATE (FERROUS SULFATE) [Concomitant]
  9. LORTAB (HYDROCODONE BITARTRATE, PARACETAMOL) [Concomitant]
  10. PEPCID (FAMOTIDINE) [Concomitant]
  11. STARLIX (NATEGLINIDE) [Concomitant]
  12. THERAGRAN-M (MINERALS NOS, VITAMINS NOS) [Concomitant]
  13. ZOFRAN (ONDANSETRON HYDROCHLORIDE) [Concomitant]
  14. ALLOPURINOL [Concomitant]
  15. SIMVASTATIN (SIMVASTATIN) [Concomitant]

REACTIONS (4)
  - Conjunctival haemorrhage [None]
  - Fatigue [None]
  - Mental impairment [None]
  - Anaemia [None]
